FAERS Safety Report 12782446 (Version 1)
Quarter: 2016Q3

REPORT INFORMATION
  Report Type: Spontaneous
  Country: FR (occurrence: FR)
  Receive Date: 20160927
  Receipt Date: 20160927
  Transmission Date: 20161109
  Serious: Yes (Other)
  Sender: FDA-Public Use
  Company Number: FR-009507513-1609FRA010308

PATIENT
  Age: 56 Year
  Sex: Male

DRUGS (2)
  1. TEMODAL [Suspect]
     Active Substance: TEMOZOLOMIDE
     Dosage: 1 DF, 5 IN 1 CYCLE, WITH PROGRESSIVE INCREASE OF DOSAGE
     Route: 048
     Dates: start: 201603, end: 201607
  2. TEMODAL [Suspect]
     Active Substance: TEMOZOLOMIDE
     Dosage: AT A LOW DOSE
     Route: 048
     Dates: start: 201601, end: 201602

REACTIONS (4)
  - Mucosal inflammation [Recovered/Resolved]
  - Rash [Recovered/Resolved]
  - Blister [Recovered/Resolved]
  - Pruritus [Recovered/Resolved]

NARRATIVE: CASE EVENT DATE: 201606
